FAERS Safety Report 9305886 (Version 3)
Quarter: 2013Q3

REPORT INFORMATION
  Report Type: Spontaneous
  Country: JP (occurrence: JP)
  Receive Date: 20130523
  Receipt Date: 20130809
  Transmission Date: 20140515
  Serious: Yes (Hospitalization, Other)
  Sender: FDA-Public Use
  Company Number: JP-JNJFOC-20130511932

PATIENT
  Age: 72 Year
  Sex: Male
  Weight: 62 kg

DRUGS (21)
  1. SIMPONI [Suspect]
     Indication: RHEUMATOID ARTHRITIS
     Route: 058
     Dates: start: 20130321
  2. SIMPONI [Suspect]
     Indication: RHEUMATOID ARTHRITIS
     Route: 058
     Dates: start: 20130418
  3. SIMPONI [Suspect]
     Indication: RHEUMATOID ARTHRITIS
     Route: 058
     Dates: start: 20130518
  4. PREDONINE [Suspect]
     Indication: RHEUMATOID ARTHRITIS
     Route: 048
  5. PREDONINE [Suspect]
     Indication: INTERSTITIAL LUNG DISEASE
     Route: 048
     Dates: start: 20130513
  6. BAKTAR [Suspect]
     Indication: PNEUMOCYSTIS JIROVECII PNEUMONIA
     Route: 048
     Dates: start: 20130503, end: 20130508
  7. NESPO [Concomitant]
     Indication: RENAL FAILURE CHRONIC
     Route: 065
  8. ALOSITOL [Concomitant]
     Indication: HYPERURICAEMIA
     Route: 048
  9. DIOVAN [Concomitant]
     Indication: HYPERTENSION
     Route: 048
  10. CALSLOT [Concomitant]
     Indication: HYPERTENSION
     Route: 048
     Dates: end: 20130516
  11. PROTECADIN [Concomitant]
     Indication: GASTRITIS
     Route: 048
     Dates: end: 20130503
  12. METHYCOBAL [Concomitant]
     Route: 048
     Dates: end: 20130529
  13. CRESTOR [Concomitant]
     Indication: DYSLIPIDAEMIA
     Route: 048
  14. FLUITRAN [Concomitant]
     Indication: RENAL FAILURE CHRONIC
     Route: 048
     Dates: end: 20130501
  15. KREMEZIN [Concomitant]
     Indication: RENAL FAILURE CHRONIC
     Route: 048
  16. SOL-MELCORT [Concomitant]
     Indication: INTERSTITIAL LUNG DISEASE
     Route: 042
     Dates: start: 20130501, end: 20130503
  17. SOL-MELCORT [Concomitant]
     Indication: INTERSTITIAL LUNG DISEASE
     Route: 042
     Dates: start: 20130504, end: 20130506
  18. SOL-MELCORT [Concomitant]
     Indication: INTERSTITIAL LUNG DISEASE
     Route: 042
     Dates: start: 20130507, end: 20130509
  19. SOL-MELCORT [Concomitant]
     Indication: INTERSTITIAL LUNG DISEASE
     Route: 042
     Dates: start: 20130510, end: 20130512
  20. BAKTAR [Concomitant]
     Indication: PNEUMOCYSTIS JIROVECII PNEUMONIA
     Route: 048
     Dates: start: 20130503, end: 20130508
  21. CEFTRIAXONE SODIUM [Concomitant]
     Indication: PNEUMONIA BACTERIAL
     Route: 042

REACTIONS (3)
  - Interstitial lung disease [Recovering/Resolving]
  - Pneumocystis jirovecii pneumonia [Recovering/Resolving]
  - Hepatic function abnormal [Recovering/Resolving]
